FAERS Safety Report 8365238-X (Version None)
Quarter: 2012Q2

REPORT INFORMATION
  Report Type: 
  Country: None (occurrence: None)
  Receive Date: 20120515
  Receipt Date: 20120425
  Transmission Date: 20120825
  Serious: Yes (Hospitalization)
  Sender: FDA-Public Use
  Company Number: THQ2012A03638

PATIENT
  Age: 63 Year
  Sex: Male

DRUGS (6)
  1. LANSOPRAZOLE [Suspect]
     Indication: DUODENITIS
     Dosage: 30 MG, 15 MG (1 D), 30 MG
  2. LANSOPRAZOLE [Suspect]
     Indication: BARRETT'S OESOPHAGUS
     Dosage: 30 MG, 15 MG (1 D), 30 MG
  3. RANITIDINE [Suspect]
     Indication: GASTRITIS EROSIVE
  4. RANITIDINE [Suspect]
     Indication: DUODENITIS
  5. OMEPRAZOLE [Suspect]
     Indication: OESOPHAGITIS
     Dosage: 40 MG (20 MG, 2 IN 1 D)
  6. OMEPRAZOLE [Suspect]
     Indication: DUODENITIS
     Dosage: 40 MG (20 MG, 2 IN 1 D)

REACTIONS (14)
  - CONVULSION [None]
  - DEHYDRATION [None]
  - VOMITING [None]
  - NEUTROPHIL COUNT INCREASED [None]
  - BLOOD PH DECREASED [None]
  - LETHARGY [None]
  - MYOCLONUS [None]
  - DIARRHOEA [None]
  - HYPOMAGNESAEMIA [None]
  - ELECTROLYTE IMBALANCE [None]
  - HEART RATE INCREASED [None]
  - ACUTE PRERENAL FAILURE [None]
  - ABDOMINAL SYMPTOM [None]
  - BLOOD CALCIUM DECREASED [None]
